FAERS Safety Report 6233904-8 (Version None)
Quarter: 2009Q2

REPORT INFORMATION
  Report Type: 
  Country: None (occurrence: None)
  Receive Date: 20090618
  Receipt Date: 20090612
  Transmission Date: 20091009
  Serious: Yes (Other)
  Sender: FDA-Public Use
  Company Number: PHHY2009SE23301

PATIENT
  Sex: Male

DRUGS (2)
  1. TEGRETOL [Suspect]
  2. CYTOSTATIC [Suspect]

REACTIONS (2)
  - LEUKOPENIA [None]
  - NEUTROPENIA [None]
